FAERS Safety Report 8541123-5 (Version None)
Quarter: 2012Q3

REPORT INFORMATION
  Report Type: 
  Country: None (occurrence: None)
  Receive Date: 20120726
  Receipt Date: 20110823
  Transmission Date: 20120928
  Serious: No
  Sender: FDA-Public Use
  Company Number: US-ASTRAZENECA-2011SE50666

PATIENT
  Age: 34 Year
  Sex: Male
  Weight: 90.7 kg

DRUGS (3)
  1. COUMADIN [Concomitant]
     Indication: THROMBOSIS
  2. CITALOPRAM HYDROBROMIDE [Concomitant]
     Indication: DEPRESSION
  3. SEROQUEL XR [Suspect]
     Route: 048
     Dates: start: 20110501

REACTIONS (1)
  - HYPERSOMNIA [None]
